FAERS Safety Report 24649592 (Version 1)
Quarter: 2024Q4

REPORT INFORMATION
  Report Type: Report from Study
  Country: US (occurrence: US)
  Receive Date: 20241121
  Receipt Date: 20241121
  Transmission Date: 20250115
  Serious: Yes (Other)
  Sender: ABBVIE
  Company Number: US-ABBVIE-6006919

PATIENT
  Age: 63 Year
  Sex: Female

DRUGS (2)
  1. RINVOQ [Suspect]
     Active Substance: UPADACITINIB
     Indication: Rheumatoid arthritis
     Dosage: LAST ADMIN DATE: 2024
     Route: 048
     Dates: start: 20240326
  2. RINVOQ [Suspect]
     Active Substance: UPADACITINIB
     Indication: Rheumatoid arthritis
     Route: 048
     Dates: start: 2024

REACTIONS (4)
  - Blindness unilateral [Unknown]
  - Pain [Unknown]
  - Visual impairment [Unknown]
  - Tooth infection [Unknown]

NARRATIVE: CASE EVENT DATE: 20240101
